FAERS Safety Report 7229324-X (Version None)
Quarter: 2011Q1

REPORT INFORMATION
  Report Type: 
  Country: None (occurrence: None)
  Receive Date: 20110117
  Receipt Date: 20110114
  Transmission Date: 20110831
  Serious: Yes (Other)
  Sender: FDA-Public Use
  Company Number: US-AMGEN-USASP2010012360

PATIENT

DRUGS (5)
  1. CORTICOSTEROIDS [Concomitant]
     Indication: PANCYTOPENIA
  2. RITUXAN [Concomitant]
     Indication: PANCYTOPENIA
  3. PREDNISONE [Concomitant]
     Indication: PANCYTOPENIA
  4. NPLATE [Suspect]
     Indication: IDIOPATHIC THROMBOCYTOPENIC PURPURA
     Dosage: UNK
     Dates: start: 20090803
  5. IMMUNOGLOBULINS [Concomitant]
     Indication: PANCYTOPENIA

REACTIONS (1)
  - MYELODYSPLASTIC SYNDROME [None]
